FAERS Safety Report 8022971-7 (Version None)
Quarter: 2012Q1

REPORT INFORMATION
  Report Type: 
  Country: None (occurrence: None)
  Receive Date: 20120104
  Receipt Date: 20111221
  Transmission Date: 20120608
  Serious: Yes (Death, Hospitalization)
  Sender: FDA-Public Use
  Company Number: FR-CELGENEUS-056-21880-11081155

PATIENT
  Sex: Female

DRUGS (6)
  1. BACTRIM [Concomitant]
     Indication: INFECTION PROPHYLAXIS
     Route: 048
     Dates: start: 20110127
  2. REVLIMID [Suspect]
     Indication: MULTIPLE MYELOMA
     Route: 048
     Dates: start: 20080703, end: 20100120
  3. VALACYCLOVIR HYDROCHLORIDE [Concomitant]
     Indication: INFECTION PROPHYLAXIS
     Dosage: 2 TABLET
     Route: 048
     Dates: start: 20110127
  4. NEORAL [Concomitant]
     Indication: IMMUNOSUPPRESSION
     Dosage: 100 MILLIGRAM
     Route: 048
     Dates: start: 20110127
  5. MYCOPHENOLATE MOFETIL (CELLCEPT) [Concomitant]
     Indication: IMMUNOSUPPRESSION
     Dosage: 2 GRAM
     Route: 048
     Dates: start: 20110127
  6. FLUCONAZOLE [Concomitant]
     Indication: INFECTION PROPHYLAXIS
     Route: 048
     Dates: start: 20110127

REACTIONS (1)
  - DIFFUSE LARGE B-CELL LYMPHOMA [None]
